FAERS Safety Report 9229356 (Version 4)
Quarter: 2013Q3

REPORT INFORMATION
  Report Type: Spontaneous
  Country: US (occurrence: US)
  Receive Date: 20130412
  Receipt Date: 20130925
  Transmission Date: 20140515
  Serious: Yes (Death, Hospitalization, Other)
  Sender: FDA-Public Use
  Company Number: US-ASTELLAS-2013US002586

PATIENT
  Age: 66 Year
  Sex: Female

DRUGS (1)
  1. PROGRAF [Suspect]
     Indication: RENAL TRANSPLANT
     Dosage: 1 MG, (1 CAPSULE IN MORNING, 1 CAPSULE IN EVENING)
     Route: 048
     Dates: start: 20070614

REACTIONS (3)
  - Death [Fatal]
  - Hospitalisation [Unknown]
  - Oedema peripheral [Unknown]
